FAERS Safety Report 10064184 (Version 2)
Quarter: 2014Q2

REPORT INFORMATION
  Report Type: Spontaneous
  Country: UY (occurrence: UY)
  Receive Date: 20140408
  Receipt Date: 20140530
  Transmission Date: 20141212
  Serious: Yes (Hospitalization, Other)
  Sender: FDA-Public Use
  Company Number: UY-ROCHE-1376776

PATIENT
  Sex: Male

DRUGS (8)
  1. PEGASYS [Suspect]
     Indication: HEPATITIS C
     Route: 058
     Dates: start: 20140208, end: 20140304
  2. RIBAVIRIN [Suspect]
     Indication: HEPATITIS C
     Route: 065
     Dates: start: 20140208, end: 20140304
  3. NEUPOGEN [Concomitant]
     Route: 065
  4. RITONAVIR [Concomitant]
  5. PREDNISONE [Concomitant]
  6. IMMUNOGLOBULINES POLYVALENTES [Concomitant]
     Dosage: 65 G/DIA
     Route: 065
  7. FOSAMPRENAVIR [Concomitant]
  8. TENOFOVIR [Concomitant]

REACTIONS (5)
  - Thrombocytopenia [Unknown]
  - Haemoglobin decreased [Unknown]
  - White blood cell count decreased [Unknown]
  - Pancytopenia [Recovering/Resolving]
  - Epistaxis [Unknown]
